FAERS Safety Report 14338354 (Version 1)
Quarter: 2017Q4

REPORT INFORMATION
  Report Type: Spontaneous
  Country: US (occurrence: US)
  Receive Date: 20171229
  Receipt Date: 20171229
  Transmission Date: 20180321
  Serious: Yes (Hospitalization)
  Sender: FDA-Public Use
  Company Number: US-PFIZER INC-2017550030

PATIENT
  Age: 75 Year
  Sex: Male
  Weight: 98 kg

DRUGS (3)
  1. REVATIO [Suspect]
     Active Substance: SILDENAFIL CITRATE
     Indication: LUNG DISORDER
     Dosage: 40 MG, 3X/DAY(20 MG, TABLET, BY MOUTH, TWO TABLET THREE TIMES A DAY)
     Route: 048
  2. IPRATROPIUM BROMIDE/ALBUTEROL SULFATE [Concomitant]
     Active Substance: ALBUTEROL SULFATE\IPRATROPIUM BROMIDE
     Indication: CHRONIC OBSTRUCTIVE PULMONARY DISEASE
     Dosage: UNK
  3. INCRUSE ELLIPTA [Concomitant]
     Active Substance: UMECLIDINIUM BROMIDE
     Indication: CHRONIC OBSTRUCTIVE PULMONARY DISEASE
     Dosage: UNK

REACTIONS (6)
  - Erythema [Unknown]
  - Cough [Recovering/Resolving]
  - Fluid retention [Unknown]
  - Peripheral swelling [Unknown]
  - Infection [Recovering/Resolving]
  - Product use issue [Unknown]
